FAERS Safety Report 15472872 (Version 1)
Quarter: 2018Q4

REPORT INFORMATION
  Report Type: Spontaneous
  Country: US (occurrence: US)
  Receive Date: 20181008
  Receipt Date: 20181008
  Transmission Date: 20190205
  Serious: No
  Sender: FDA-Public Use
  Company Number: US-PFIZER INC-2018397296

PATIENT
  Sex: Female

DRUGS (3)
  1. GABAPENTIN. [Suspect]
     Active Substance: GABAPENTIN
     Indication: METASTASES TO LIVER
  2. GABAPENTIN. [Suspect]
     Active Substance: GABAPENTIN
     Indication: METASTASES TO BREAST
  3. GABAPENTIN. [Suspect]
     Active Substance: GABAPENTIN
     Indication: NEOPLASM MALIGNANT
     Dosage: 3000 MG, DAILY (3000MG DAILY FOR OVER A YEAR)

REACTIONS (6)
  - Overdose [Unknown]
  - Malaise [Unknown]
  - Product use in unapproved indication [Unknown]
  - Headache [Unknown]
  - Withdrawal syndrome [Unknown]
  - Pruritus [Unknown]
